FAERS Safety Report 19398969 (Version 1)
Quarter: 2021Q2

REPORT INFORMATION
  Report Type: Spontaneous
  Country: US (occurrence: US)
  Receive Date: 20210610
  Receipt Date: 20210610
  Transmission Date: 20210717
  Serious: No
  Sender: FDA-Public Use
  Company Number: None

PATIENT
  Age: 65 Year
  Sex: Female

DRUGS (7)
  1. TIZANIDINE. [Suspect]
     Active Substance: TIZANIDINE
     Indication: MUSCLE SPASMS
     Dosage: ?          QUANTITY:1 TABLET(S);?
     Route: 048
     Dates: start: 20210531, end: 20210607
  2. LIDODERM (LIDOCAINE PATCH) [Concomitant]
  3. VOLTAREN [Concomitant]
     Active Substance: DICLOFENAC SODIUM
  4. ACETAMINOPHEN. [Concomitant]
     Active Substance: ACETAMINOPHEN
  5. IBUPROFEN. [Concomitant]
     Active Substance: IBUPROFEN
  6. CANNABIDIOL [Concomitant]
     Active Substance: CANNABIDIOL
  7. MULTIVITAMIN [Concomitant]
     Active Substance: VITAMINS

REACTIONS (7)
  - Withdrawal syndrome [None]
  - Palpitations [None]
  - Wrong technique in product usage process [None]
  - Blood pressure increased [None]
  - Somnolence [None]
  - Heart rate increased [None]
  - Tachycardia [None]

NARRATIVE: CASE EVENT DATE: 20210608
